FAERS Safety Report 4788292-0 (Version None)
Quarter: 2005Q4

REPORT INFORMATION
  Report Type: 
  Country: None (occurrence: None)
  Receive Date: 20051003
  Receipt Date: 20050916
  Transmission Date: 20060501
  Serious: Yes (Other)
  Sender: FDA-Public Use
  Company Number: 2005VX000529

PATIENT
  Age: 59 Year
  Sex: Female

DRUGS (6)
  1. TASMAR [Suspect]
     Indication: PARKINSON'S DISEASE
     Dosage: 100 MG; 3 TIMES A DAY
     Dates: start: 20050804, end: 20050912
  2. MADOPAR [Concomitant]
  3. AMANTADINE HCL [Concomitant]
  4. PERIBEDIL [Concomitant]
  5. COAXIL [Concomitant]
  6. CIPRAMIL [Concomitant]

REACTIONS (1)
  - ALANINE AMINOTRANSFERASE INCREASED [None]
